FAERS Safety Report 6235338-9 (Version None)
Quarter: 2009Q2

REPORT INFORMATION
  Report Type: 
  Country: None (occurrence: None)
  Receive Date: 20090618
  Receipt Date: 20090609
  Transmission Date: 20091009
  Serious: Yes (Death)
  Sender: FDA-Public Use
  Company Number: AU-BAXTER-2009BH009920

PATIENT
  Age: 47 Year
  Sex: Female

DRUGS (1)
  1. DIANEAL [Suspect]
     Indication: PERITONEAL DIALYSIS
     Route: 033

REACTIONS (1)
  - NEUROENDOCRINE CARCINOMA OF THE SKIN [None]
